FAERS Safety Report 8011635-1 (Version None)
Quarter: 2011Q4

REPORT INFORMATION
  Report Type: 
  Country: None (occurrence: None)
  Receive Date: 20111228
  Receipt Date: 20111223
  Transmission Date: 20120403
  Serious: Yes (Other)
  Sender: FDA-Public Use
  Company Number: FR-B.I. PHARMACEUTICALS,INC./RIDGEFIELD-2011-FF-01221FF

PATIENT
  Sex: Male

DRUGS (9)
  1. TRAMADOL HCL [Concomitant]
     Route: 048
     Dates: start: 20111022
  2. ACETAMINOPHEN [Concomitant]
     Dosage: 4000 MG
     Route: 048
     Dates: start: 20111021
  3. PRADAXA [Suspect]
     Indication: THROMBOSIS PROPHYLAXIS
     Dosage: 220 MG
     Route: 048
     Dates: start: 20111021, end: 20111024
  4. MORPHINE SULFATE [Concomitant]
     Route: 048
     Dates: start: 20111022
  5. KETOPROFEN [Concomitant]
     Dosage: 200 MG
     Route: 042
     Dates: start: 20111021
  6. CARBAMAZEPINE [Concomitant]
     Indication: EPILEPSY
     Dosage: 400 MG
     Route: 048
  7. RABEPRAZOLE SODIUM [Concomitant]
     Dosage: 10 MG
     Route: 048
     Dates: start: 20111021
  8. TELMISARTAN [Concomitant]
     Dosage: 80 MG
     Route: 048
  9. PRADAXA [Suspect]
     Indication: KNEE ARTHROPLASTY

REACTIONS (2)
  - DRUG INEFFECTIVE [None]
  - PHLEBITIS [None]
